FAERS Safety Report 5507408-1 (Version None)
Quarter: 2007Q4

REPORT INFORMATION
  Report Type: 
  Country: None (occurrence: None)
  Receive Date: 20071102
  Receipt Date: 20071019
  Transmission Date: 20080405
  Serious: Yes (Hospitalization, Other)
  Sender: FDA-Public Use
  Company Number: ENT 2007-0134

PATIENT
  Age: 57 Year
  Sex: Male

DRUGS (8)
  1. COMTAN [Suspect]
     Indication: DRUG EFFECT DECREASED
     Dosage: 300 MG (100 MG, 3 IN 1 D) ORAL
     Route: 048
     Dates: start: 20070719
  2. CARBIDOPA AND LEVODOPA [Suspect]
     Indication: PARKINSON'S DISEASE
     Dosage: 500 MG (100 MG, 5 IN 1 D) ORAL
     Route: 048
     Dates: start: 20070414
  3. SELEGILINE HCL [Suspect]
     Indication: PARKINSON'S DISEASE
     Dosage: 7.5 MG (2.5 MG, 3 IN 1 D) ORAL
     Route: 048
     Dates: start: 20070714
  4. CLONAZEPAM [Suspect]
     Indication: PARKINSON'S DISEASE
     Dosage: 6 MG (2 MG, 3 IN 1 D) ORAL
     Route: 048
     Dates: start: 20070414
  5. REQUIP [Suspect]
     Indication: PARKINSON'S DISEASE
     Dosage: 6 MG (2 MG, 3 IN 1 D) ORAL
     Route: 048
     Dates: start: 20070414
  6. ARTANE [Suspect]
     Indication: PARKINSON'S DISEASE
     Dosage: 6 MG (2 MG, 3 IN 1 D) ORAL
     Route: 048
     Dates: start: 20070414
  7. TERNELIN [Concomitant]
  8. MILMAG [Concomitant]

REACTIONS (9)
  - ABNORMAL BEHAVIOUR [None]
  - CONSTIPATION [None]
  - DECREASED APPETITE [None]
  - DELUSIONAL DISORDER, PERSECUTORY TYPE [None]
  - EMOTIONAL DISTRESS [None]
  - INCOHERENT [None]
  - MEMORY IMPAIRMENT [None]
  - PSYCHIATRIC SYMPTOM [None]
  - WEIGHT DECREASED [None]
